FAERS Safety Report 24044715 (Version 1)
Quarter: 2024Q3

REPORT INFORMATION
  Report Type: Spontaneous
  Country: US (occurrence: US)
  Receive Date: 20240703
  Receipt Date: 20240703
  Transmission Date: 20241016
  Serious: Yes (Hospitalization)
  Sender: SANOFI AVENTIS
  Company Number: US-SA-SAC20240628001253

PATIENT
  Age: 6 Year
  Sex: Male

DRUGS (1)
  1. DUPIXENT [Suspect]
     Active Substance: DUPILUMAB
     Indication: Eosinophilic oesophagitis
     Dosage: 200 MG, QOW
     Route: 058
     Dates: start: 202404

REACTIONS (7)
  - Dysphagia [Recovered/Resolved]
  - Panic attack [Unknown]
  - Anxiety [Unknown]
  - Gait disturbance [Unknown]
  - Crying [Unknown]
  - Screaming [Unknown]
  - Toothache [Unknown]

NARRATIVE: CASE EVENT DATE: 20240101
